FAERS Safety Report 8792443 (Version 1)
Quarter: 2012Q4

REPORT INFORMATION
  Report Type: 
  Country: US (occurrence: US)
  Receive Date: 20120918
  Receipt Date: 20120918
  Transmission Date: 20130627
  Serious: No
  Sender: FDA-Public Use
  Company Number: US-VERTEX PHARMACEUTICAL INC.-AE-2012-011436

PATIENT
  Sex: Female
  Weight: 98 kg

DRUGS (6)
  1. VX-950 [Suspect]
     Indication: HEPATITIS C
     Dosage: 750 mg, tid
     Route: 048
     Dates: start: 2012, end: 20120821
  2. RIBASPHERE [Concomitant]
     Indication: HEPATITIS C
     Dosage: 600 mg, bid
     Route: 048
     Dates: start: 2012
  3. PEGINTRON                          /01543001/ [Concomitant]
     Indication: HEPATITIS C
     Dosage: 180 ?g, UNK
     Route: 058
     Dates: start: 2012
  4. LOSARTAN POTASSIUM [Concomitant]
     Dosage: 50 mg, qd
     Route: 048
  5. VITAMIN C                          /00008001/ [Concomitant]
     Dosage: 500 mg, qd
     Route: 048
  6. EQL OMEPRAZOLE DR [Concomitant]
     Dosage: 20 mg, qd
     Route: 048

REACTIONS (8)
  - Urinary tract infection [Recovered/Resolved]
  - Dizziness [Unknown]
  - Dyspnoea [Unknown]
  - Weight decreased [Unknown]
  - Alopecia [Unknown]
  - Abdominal pain upper [Unknown]
  - Fatigue [Unknown]
  - Rash generalised [Unknown]
